FAERS Safety Report 8139333-4 (Version None)
Quarter: 2012Q1

REPORT INFORMATION
  Report Type: 
  Country: None (occurrence: None)
  Receive Date: 20120215
  Receipt Date: 20110524
  Transmission Date: 20120608
  Serious: No
  Sender: FDA-Public Use
  Company Number: US-MYLANLABS-2011S1010768

PATIENT
  Age: 67 Year
  Sex: Female
  Weight: 63.5 kg

DRUGS (4)
  1. VERAPAMIL [Concomitant]
     Indication: MIGRAINE
  2. KLONOPIN [Concomitant]
     Indication: VERTIGO
  3. HYDROCHLOROTHIAZIDE [Suspect]
     Indication: RENAL FAILURE ACUTE
     Dosage: 3 1/2 PILLS DAY
     Route: 048
     Dates: start: 20110413, end: 20110414
  4. PRAVACHOL [Concomitant]
     Indication: BLOOD CHOLESTEROL

REACTIONS (3)
  - PALPITATIONS [None]
  - HEART RATE INCREASED [None]
  - CHEST DISCOMFORT [None]
